FAERS Safety Report 24183321 (Version 1)
Quarter: 2024Q3

REPORT INFORMATION
  Report Type: Spontaneous
  Country: CN (occurrence: CN)
  Receive Date: 20240807
  Receipt Date: 20240807
  Transmission Date: 20241016
  Serious: Yes (Hospitalization, Other)
  Sender: BAYER
  Company Number: CN-BAYER-2024A112694

PATIENT
  Age: 38 Year
  Sex: Female
  Weight: 78 kg

DRUGS (3)
  1. GLUCOBAY [Suspect]
     Active Substance: ACARBOSE
     Indication: Type 2 diabetes mellitus
     Dosage: 50 MG, TID
     Route: 048
     Dates: start: 20210713, end: 20230908
  2. SAXAGLIPTIN [Suspect]
     Active Substance: SAXAGLIPTIN
     Indication: Type 2 diabetes mellitus
     Dosage: 5 MG, QD
     Route: 048
     Dates: start: 20230908, end: 20240725
  3. GLIQUIDONE [Concomitant]
     Active Substance: GLIQUIDONE
     Indication: Type 2 diabetes mellitus
     Dosage: 30 MG, TID
     Route: 048
     Dates: start: 20210713, end: 20240725

REACTIONS (10)
  - Pustule [Recovering/Resolving]
  - Abdominal wall abscess [Recovered/Resolved]
  - Abdominal wall abscess [Recovered/Resolved]
  - Abdominal mass [Recovering/Resolving]
  - Asthenia [Recovering/Resolving]
  - Rash [None]
  - Abdominal mass [Recovered/Resolved]
  - Erythema [Recovered/Resolved]
  - Abdominal tenderness [Recovered/Resolved]
  - Erythema [Recovering/Resolving]

NARRATIVE: CASE EVENT DATE: 20220501
